FAERS Safety Report 4280669-5 (Version None)
Quarter: 2004Q1

REPORT INFORMATION
  Report Type: 
  Country: None (occurrence: None)
  Receive Date: 20040127
  Receipt Date: 20040115
  Transmission Date: 20041129
  Serious: Yes (Hospitalization)
  Sender: FDA-Public Use
  Company Number: 02P-087-0195726-00

PATIENT
  Age: 31 Year
  Sex: Male

DRUGS (17)
  1. KALETRA [Suspect]
     Indication: HIV INFECTION
     Dosage: 8 CAPSULE, PER ORAL
     Route: 048
     Dates: start: 20010227
  2. LAMIVUDINE [Suspect]
     Indication: HIV INFECTION
     Dosage: 300 MG, 1 IN 1 D, PER ORAL
     Route: 048
     Dates: start: 19991126
  3. NELFINAVIR [Suspect]
     Indication: HIV INFECTION
     Dosage: 2.25 MG, 1 IN 1 D, PER ORAL
     Route: 048
     Dates: start: 20010227
  4. EFAVIRENZ [Suspect]
     Indication: HIV INFECTION
     Dosage: 600 M G, 1 IN 1 D, PER ORAL
     Route: 048
     Dates: start: 19991101, end: 19991119
  5. DIDANOSINE [Suspect]
     Indication: HIV INFECTION
     Dosage: 200 MG, 1 IN 1 D, PER ORAL
     Route: 048
     Dates: start: 19991101, end: 19991119
  6. AMPRENAVIR [Suspect]
     Indication: HIV INFECTION
     Dosage: 2400 MG, DAILY, PER ORAL
     Route: 048
     Dates: start: 19991101, end: 19991119
  7. STAVUDINE [Suspect]
     Indication: HIV INFECTION
     Dosage: 60 MG, 1 IN 1 D, PER ORAL
     Route: 048
     Dates: start: 19991101, end: 19991119
  8. CLARITHROMYCIN [Concomitant]
  9. BACTRIM [Concomitant]
  10. ETHAMBUTOL DIHYDROCHLORIDE [Concomitant]
  11. HYDROCORTISONE [Concomitant]
  12. PENTAZOCINE [Concomitant]
  13. BROTIZOLAM [Concomitant]
  14. ZOPICLONE [Concomitant]
  15. NORVIR [Concomitant]
  16. SAQUINAVIR [Concomitant]
  17. ABACAVIR [Concomitant]

REACTIONS (8)
  - BLOOD AMYLASE INCREASED [None]
  - CENTRAL NERVOUS SYSTEM LYMPHOMA [None]
  - HYPERGLYCAEMIA [None]
  - HYPERLIPIDAEMIA [None]
  - NECROSIS [None]
  - NEOPLASM RECURRENCE [None]
  - NERVOUS SYSTEM DISORDER [None]
  - PANCYTOPENIA [None]
